FAERS Safety Report 15860054 (Version 1)
Quarter: 2019Q1

REPORT INFORMATION
  Report Type: Spontaneous
  Country: US (occurrence: US)
  Receive Date: 20190123
  Receipt Date: 20190123
  Transmission Date: 20190417
  Serious: Yes (Death)
  Sender: FDA-Public Use
  Company Number: PHEH2018US055929

PATIENT
  Sex: Male

DRUGS (2)
  1. VOTRIENT [Suspect]
     Active Substance: PAZOPANIB HYDROCHLORIDE
     Indication: PRODUCT USED FOR UNKNOWN INDICATION
     Dosage: 2 DF, OTHER (ON DAYS 1-14 AND 3 TABLETS (600MG) ON DAYS 15-28)
     Route: 048
     Dates: start: 201806
  2. VOTRIENT [Suspect]
     Active Substance: PAZOPANIB HYDROCHLORIDE
     Dosage: 3 DF, OTHER (ON DAYS 1-14 AND 3 TABLETS (600MG) ON DAYS 15-28)
     Route: 048
     Dates: start: 201806

REACTIONS (1)
  - Death [Fatal]
